FAERS Safety Report 21327913 (Version 1)
Quarter: 2022Q3

REPORT INFORMATION
  Report Type: Spontaneous
  Country: US (occurrence: US)
  Receive Date: 20220913
  Receipt Date: 20220913
  Transmission Date: 20221027
  Serious: No
  Sender: FDA-Public Use
  Company Number: US-JNJFOC-20220857999

PATIENT
  Sex: Female
  Weight: 49.940 kg

DRUGS (2)
  1. TREMFYA [Suspect]
     Active Substance: GUSELKUMAB
     Indication: Arthritis
     Route: 065
  2. TREMFYA [Suspect]
     Active Substance: GUSELKUMAB
     Indication: Psoriatic arthropathy

REACTIONS (7)
  - Asthenia [Recovering/Resolving]
  - Weight decreased [Recovering/Resolving]
  - Dizziness [Recovering/Resolving]
  - Palpitations [Recovering/Resolving]
  - Oropharyngeal pain [Recovering/Resolving]
  - Hypotension [Recovering/Resolving]
  - Inappropriate schedule of product administration [Unknown]
